FAERS Safety Report 8386443-2 (Version None)
Quarter: 2012Q2

REPORT INFORMATION
  Report Type: 
  Country: None (occurrence: None)
  Receive Date: 20120525
  Receipt Date: 20120522
  Transmission Date: 20120825
  Serious: Yes (Other)
  Sender: FDA-Public Use
  Company Number: US-PFIZER INC-2012124176

PATIENT
  Sex: Male
  Weight: 77.098 kg

DRUGS (2)
  1. DILANTIN [Suspect]
     Indication: CONVULSION
     Dosage: 300 MG, 1X/DAY
     Route: 048
     Dates: start: 20120414
  2. KEPPRA [Concomitant]
     Indication: CONVULSION
     Dosage: UNK, 2X/DAY

REACTIONS (10)
  - MUSCLE TWITCHING [None]
  - SKIN EXFOLIATION [None]
  - CONFUSIONAL STATE [None]
  - COORDINATION ABNORMAL [None]
  - VISION BLURRED [None]
  - HYPOAESTHESIA [None]
  - PAIN IN EXTREMITY [None]
  - FRUSTRATION [None]
  - CEREBRAL HAEMATOMA [None]
  - PARAESTHESIA [None]
